FAERS Safety Report 19048255 (Version 22)
Quarter: 2025Q2

REPORT INFORMATION
  Report Type: Report from Study
  Country: US (occurrence: US)
  Receive Date: 20210323
  Receipt Date: 20250508
  Transmission Date: 20250716
  Serious: Yes (Other)
  Sender: TAKEDA
  Company Number: US-TAKEDA-US202015633

PATIENT
  Age: 65 Year
  Sex: Female

DRUGS (2)
  1. HUMAN IMMUNOGLOBULIN G [Suspect]
     Active Substance: HUMAN IMMUNOGLOBULIN G
     Indication: Primary immunodeficiency syndrome
  2. HUMAN IMMUNOGLOBULIN G [Suspect]
     Active Substance: HUMAN IMMUNOGLOBULIN G
     Indication: IgG deficiency
     Dosage: 50 GRAM, MONTHLY

REACTIONS (28)
  - Pericardial effusion [Unknown]
  - Breast mass [Unknown]
  - Infusion related reaction [Recovered/Resolved]
  - COVID-19 [Unknown]
  - Viral infection [Unknown]
  - Arthritis [Unknown]
  - Limb discomfort [Unknown]
  - Back injury [Unknown]
  - Inability to afford medication [Unknown]
  - Illness [Unknown]
  - Candida infection [Unknown]
  - Weight decreased [Recovered/Resolved]
  - Gastrointestinal disorder [Unknown]
  - Bronchitis [Not Recovered/Not Resolved]
  - Rib fracture [Unknown]
  - Pyrexia [Recovered/Resolved]
  - Oropharyngeal pain [Unknown]
  - Malaise [Unknown]
  - Dyspnoea [Unknown]
  - Headache [Recovered/Resolved]
  - Nausea [Recovered/Resolved]
  - Migraine [Unknown]
  - Fatigue [Unknown]
  - Fluid retention [Unknown]
  - Fall [Unknown]
  - Pain [Unknown]
  - Balance disorder [Unknown]
  - Contusion [Unknown]

NARRATIVE: CASE EVENT DATE: 20240419
